FAERS Safety Report 8179877-2 (Version None)
Quarter: 2012Q1

REPORT INFORMATION
  Report Type: 
  Country: None (occurrence: None)
  Receive Date: 20120302
  Receipt Date: 20120228
  Transmission Date: 20120608
  Serious: No
  Sender: FDA-Public Use
  Company Number: US-TEVA-325273USA

PATIENT
  Sex: Female
  Weight: 66.738 kg

DRUGS (2)
  1. DEPO-PROVERA [Suspect]
     Indication: CONTRACEPTION
     Dates: start: 20120213
  2. PLAN B ONE-STEP [Suspect]
     Indication: POST COITAL CONTRACEPTION
     Dosage: 1.5 MILLIGRAM;
     Route: 048
     Dates: start: 20120218, end: 20120218

REACTIONS (6)
  - HOT FLUSH [None]
  - ANXIETY [None]
  - DIZZINESS [None]
  - MENSTRUATION IRREGULAR [None]
  - COLD SWEAT [None]
  - INSOMNIA [None]
